FAERS Safety Report 7444740-9 (Version None)
Quarter: 2011Q2

REPORT INFORMATION
  Report Type: 
  Country: None (occurrence: None)
  Receive Date: 20110429
  Receipt Date: 20100504
  Transmission Date: 20111010
  Serious: No
  Sender: FDA-Public Use
  Company Number: US-PFIZER INC-US-WYE-H15016910

PATIENT
  Age: 46 Year
  Sex: Female
  Weight: 54.4 kg

DRUGS (3)
  1. CHLORPHENAMINE AND CHLORPHENIRAMINE AND IBUPROFEN AND PSEUDOEPHEDRINE [Suspect]
     Dosage: 1 TABLET AS NEEDED
     Route: 048
     Dates: start: 20100101, end: 20100101
  2. CHLORPHENAMINE AND CHLORPHENIRAMINE AND IBUPROFEN AND PSEUDOEPHEDRINE [Suspect]
     Dosage: 1 TABLET AS NEEDED
     Route: 065
     Dates: start: 20100101
  3. CHLORPHENAMINE AND CHLORPHENIRAMINE AND IBUPROFEN AND PSEUDOEPHEDRINE [Suspect]
     Indication: HYPERSENSITIVITY
     Dosage: 1 TABLET AS NEEDED
     Route: 048
     Dates: start: 20100424, end: 20100101

REACTIONS (3)
  - DIARRHOEA [None]
  - ABDOMINAL DISCOMFORT [None]
  - INSOMNIA [None]
